FAERS Safety Report 8560758 (Version 3)
Quarter: 2015Q2

REPORT INFORMATION
  Report Type: Report from Study
  Country: DE (occurrence: DE)
  Receive Date: 20120514
  Receipt Date: 20150409
  Transmission Date: 20150821
  Serious: Yes (Life-Threatening, Hospitalization)
  Sender: FDA-Public Use
  Company Number: DE-BRISTOL-MYERS SQUIBB COMPANY-16583619

PATIENT
  Age: 59 Year
  Sex: Male
  Weight: 61 kg

DRUGS (7)
  1. DOCETAXEL. [Suspect]
     Active Substance: DOCETAXEL
     Indication: HEAD AND NECK CANCER
     Dosage: UNK
     Route: 065
  2. FLUOROURACIL. [Suspect]
     Active Substance: FLUOROURACIL
     Indication: HEAD AND NECK CANCER
     Dosage: 1695 MG, QD
     Route: 065
     Dates: start: 20120215
  3. CETUXIMAB [Suspect]
     Active Substance: CETUXIMAB
     Indication: HEAD AND NECK CANCER
     Dosage: 423.75 MG, QD
     Route: 065
     Dates: start: 20120215
  4. DEXAMETHASONE. [Concomitant]
     Active Substance: DEXAMETHASONE
     Indication: ANTIINFLAMMATORY THERAPY
     Dosage: 8 DF, UNK
     Route: 065
     Dates: start: 20120215, end: 20120215
  5. FENISTIL [Concomitant]
     Active Substance: DIMETHINDENE
     Indication: ANTIALLERGIC THERAPY
     Dosage: 4 DF, UNK
     Route: 065
     Dates: start: 20120215, end: 20120215
  6. CISPLATIN. [Suspect]
     Active Substance: CISPLATIN
     Indication: HEAD AND NECK CANCER
     Dosage: 50.85 MG, QD
     Route: 065
     Dates: start: 20120215
  7. KEVATRIL [Concomitant]
     Active Substance: GRANISETRON HYDROCHLORIDE
     Indication: ANTIEMETIC SUPPORTIVE CARE
     Dosage: 3 DF, UNK
     Route: 065
     Dates: start: 20120215, end: 20120215

REACTIONS (1)
  - Neutropenia [Recovered/Resolved]

NARRATIVE: CASE EVENT DATE: 20120222
